FAERS Safety Report 4601257-4 (Version None)
Quarter: 2005Q1

REPORT INFORMATION
  Report Type: 
  Country: None (occurrence: None)
  Receive Date: 20050304
  Receipt Date: 20050302
  Transmission Date: 20050727
  Serious: Yes (Death)
  Sender: FDA-Public Use
  Company Number: A001-002-006406

PATIENT
  Age: 90 Year
  Sex: Male
  Weight: 95 kg

DRUGS (4)
  1. ARICEPT [Suspect]
     Indication: DEMENTIA ALZHEIMER'S TYPE
     Dosage: 10 MG, 1 IN 1 D, ORAL
     Route: 048
     Dates: start: 20010601
  2. NAMENDA [Suspect]
     Indication: DEMENTIA ALZHEIMER'S TYPE
     Dosage: 20 MG, 2 IN 1 D, ORAL
     Route: 048
     Dates: start: 20040407
  3. LISINOPRIL [Concomitant]
  4. LASIX [Concomitant]

REACTIONS (6)
  - BODY TEMPERATURE DECREASED [None]
  - HYPERKALAEMIA [None]
  - HYPERNATRAEMIA [None]
  - METABOLIC ACIDOSIS [None]
  - PANCYTOPENIA [None]
  - RENAL FAILURE ACUTE [None]
